FAERS Safety Report 11746904 (Version 1)
Quarter: 2015Q4

REPORT INFORMATION
  Report Type: Spontaneous
  Country: GB (occurrence: GB)
  Receive Date: 20151117
  Receipt Date: 20151117
  Transmission Date: 20160304
  Serious: Yes (Disabling)
  Sender: FDA-Public Use
  Company Number: GB-TEVA-607428ACC

PATIENT
  Age: 46 Year
  Sex: Female
  Weight: 48.98 kg

DRUGS (4)
  1. FLUCONAZOLE. [Concomitant]
     Active Substance: FLUCONAZOLE
     Route: 065
  2. COCODAMOL [Concomitant]
     Active Substance: ACETAMINOPHEN\CODEINE PHOSPHATE
     Route: 065
  3. TEVA UK DIAZEPAM [Suspect]
     Active Substance: DIAZEPAM
     Indication: NECK PAIN
     Dosage: FIRST DOSE
     Route: 048
     Dates: start: 20151023, end: 20151024
  4. IBUPROFEN SODIUM [Concomitant]
     Active Substance: IBUPROFEN SODIUM
     Route: 065

REACTIONS (4)
  - Back pain [Recovering/Resolving]
  - Migraine [Recovering/Resolving]
  - Pain in extremity [Recovering/Resolving]
  - Insomnia [Recovering/Resolving]

NARRATIVE: CASE EVENT DATE: 20151024
